FAERS Safety Report 8859728 (Version 1)
Quarter: 2012Q4

REPORT INFORMATION
  Report Type: Report from Study
  Country: US (occurrence: US)
  Receive Date: 20121025
  Receipt Date: 20121025
  Transmission Date: 20130627
  Serious: No
  Sender: FDA-Public Use
  Company Number: US-ABBOTT-12P-163-0906497-00

PATIENT
  Sex: Female
  Weight: 82.17 kg

DRUGS (6)
  1. LUPRON DEPOT 3.75 MG [Suspect]
     Indication: ENDOMETRIOSIS
     Dates: start: 20120103
  2. ENJUVIA [Concomitant]
     Indication: PROPHYLAXIS
     Dates: start: 20120105
  3. ENJUVIA [Concomitant]
     Indication: ADVERSE DRUG REACTION
  4. VITAMIN C [Concomitant]
     Indication: ROUTINE HEALTH MAINTENANCE
  5. IRON [Concomitant]
     Indication: ROUTINE HEALTH MAINTENANCE
  6. UNKNOWN STOOL SOFTENER [Concomitant]
     Indication: CONSTIPATION PROPHYLAXIS

REACTIONS (4)
  - Arthralgia [Recovering/Resolving]
  - Gait disturbance [Recovering/Resolving]
  - Disturbance in attention [Not Recovered/Not Resolved]
  - Memory impairment [Not Recovered/Not Resolved]
